FAERS Safety Report 25419203 (Version 5)
Quarter: 2025Q4

REPORT INFORMATION
  Report Type: Spontaneous
  Country: JP (occurrence: JP)
  Receive Date: 20250610
  Receipt Date: 20251225
  Transmission Date: 20260117
  Serious: Yes (Hospitalization, Other)
  Sender: ALEXION PHARMACEUTICALS
  Company Number: JP-ASTRAZENECA-250055439_013120_P_1

PATIENT
  Age: 82 Year
  Sex: Male
  Weight: 72 kg

DRUGS (17)
  1. IMFINZI [Suspect]
     Active Substance: DURVALUMAB
     Indication: Bile duct cancer
     Dosage: 1500 MILLIGRAM
     Dates: start: 20230330, end: 20250507
  2. MAGNESIUM OXIDE [Concomitant]
     Active Substance: MAGNESIUM OXIDE
     Indication: Constipation
     Dosage: 330 MG 2T, 3 TIMES A DAY
     Route: 061
  3. LANSOPRAZOLE [Concomitant]
     Active Substance: LANSOPRAZOLE
     Indication: Gastrooesophageal reflux disease
     Dosage: 15 MG, OD, 1 TIME/DAY
  4. CELECOXIB [Concomitant]
     Active Substance: CELECOXIB
     Indication: Back pain
     Dosage: 100 MILLIGRAM, BID
     Dates: start: 20220409
  5. LIMAPROST [Concomitant]
     Active Substance: LIMAPROST
     Indication: Spinal stenosis
     Dosage: 5 MCG IT, 3 TIMES/DAY
  6. METHYLCOBALAMIN [Concomitant]
     Active Substance: METHYLCOBALAMIN
     Indication: Hypoaesthesia
     Dosage: 500 MCG IT, 3 TIMES/DAY
     Route: 061
  7. NEUROTROPIN [Concomitant]
     Active Substance: NEUROTROPIN
     Indication: Hypoaesthesia
     Dosage: 4 UNITS, 2 T, 2 TIMES/DAY
     Route: 061
  8. BACLOFEN [Concomitant]
     Active Substance: BACLOFEN
     Indication: Hypoaesthesia
     Dosage: 5 MG IT, 2 TIMES/DAY
     Route: 061
  9. LINZESS [Concomitant]
     Active Substance: LINACLOTIDE
     Indication: Constipation
     Dosage: 0.25 MG, 2T, 1 TIME/DAY
     Route: 061
  10. HERBALS [Concomitant]
     Active Substance: HERBALS
     Indication: Hypoaesthesia
     Dosage: 2.5 G/PACKET, 1 PACKET, 3 TIMES/DAY
     Route: 061
  11. PREGABALIN [Concomitant]
     Active Substance: PREGABALIN
     Indication: Hypoaesthesia
     Dosage: 25 MG IT, 3 TIMES/DAY
  12. DICLOFENAC SODIUM [Concomitant]
     Active Substance: DICLOFENAC SODIUM
     Indication: Muscle spasms
     Dosage: UNK
  13. SHAKUYAKUKANZOTO [Concomitant]
     Active Substance: HERBALS
     Indication: Muscle spasms
     Dosage: 2.5 G/PACKET, 1 PACKET, 3 TIMES/DAY
     Route: 061
  14. UNSPECIFIED INGREDIENT [Concomitant]
     Active Substance: UNSPECIFIED INGREDIENT
     Indication: Premedication
     Dosage: 50 MG/PACKET, 1 PACKET, 1 TIME/DAY
  15. SODIUM FERROUS CITRATE [Concomitant]
     Active Substance: SODIUM FERROUS CITRATE
     Indication: Anaemia
     Dosage: UNK
     Route: 061
  16. AZOSEMIDE [Concomitant]
     Active Substance: AZOSEMIDE
     Indication: Oedema peripheral
     Dosage: 30 MG 1T 1 TIME/DAY
     Route: 061
  17. SPIRONOLACTONE [Concomitant]
     Active Substance: SPIRONOLACTONE
     Indication: Oedema peripheral
     Dosage: 25 MG 1T 1 TIME/DAY
     Route: 061

REACTIONS (4)
  - Immune-mediated myocarditis [Unknown]
  - Pericardial effusion [Recovering/Resolving]
  - Enterobacter pneumonia [Recovered/Resolved]
  - Hypothyroidism [Recovered/Resolved]

NARRATIVE: CASE EVENT DATE: 20250507
